FAERS Safety Report 5248185-1 (Version None)
Quarter: 2007Q1

REPORT INFORMATION
  Report Type: 
  Country: None (occurrence: None)
  Receive Date: 20070227
  Receipt Date: 20060530
  Transmission Date: 20070707
  Serious: No
  Sender: FDA-Public Use
  Company Number: US-BRISTOL-MYERS SQUIBB COMPANY-13394358

PATIENT
  Age: 52 Year
  Sex: Male
  Weight: 134 kg

DRUGS (4)
  1. GLUCOPHAGE [Suspect]
     Route: 048
  2. BYETTA [Suspect]
     Indication: DIABETES MELLITUS NON-INSULIN-DEPENDENT
     Route: 058
     Dates: start: 20060301
  3. AMARYL [Concomitant]
  4. ACTOS [Concomitant]
     Dates: start: 20050101, end: 20060101

REACTIONS (4)
  - BLOOD GLUCOSE INCREASED [None]
  - BURNING SENSATION [None]
  - DIARRHOEA [None]
  - INJECTION SITE PAIN [None]
